FAERS Safety Report 20063651 (Version 1)
Quarter: 2021Q4

REPORT INFORMATION
  Report Type: Spontaneous
  Country: IT (occurrence: IT)
  Receive Date: 20211112
  Receipt Date: 20211112
  Transmission Date: 20220303
  Serious: Yes (Hospitalization)
  Sender: FDA-Public Use
  Company Number: None

PATIENT
  Age: 14 Year
  Sex: Male

DRUGS (6)
  1. IRINOTECAN [Suspect]
     Active Substance: IRINOTECAN
     Indication: Glioma
     Dosage: IRINOTECAN HYDROCHLORIDE TRIHYDRATE
     Route: 042
     Dates: start: 20210924, end: 20210924
  2. BEVACIZUMAB [Suspect]
     Active Substance: BEVACIZUMAB
     Indication: Glioma
     Route: 042
     Dates: start: 20210924, end: 20210924
  3. OMEPRAZOLE [Concomitant]
     Active Substance: OMEPRAZOLE
     Indication: Product used for unknown indication
     Route: 065
  4. CHLORPHENIRAMINE MALEATE [Concomitant]
     Active Substance: CHLORPHENIRAMINE MALEATE
     Indication: Product used for unknown indication
     Route: 065
  5. ONDANSETRON [Concomitant]
     Active Substance: ONDANSETRON
     Indication: Product used for unknown indication
     Route: 065
  6. DEXAMETHASONE [Concomitant]
     Active Substance: DEXAMETHASONE
     Indication: Product used for unknown indication
     Route: 065

REACTIONS (3)
  - Off label use [Recovering/Resolving]
  - Deep vein thrombosis [Recovering/Resolving]
  - Embolism [Recovering/Resolving]

NARRATIVE: CASE EVENT DATE: 20210928
